FAERS Safety Report 9595282 (Version 2)
Quarter: 2013Q4

REPORT INFORMATION
  Report Type: Spontaneous
  Country: US (occurrence: US)
  Receive Date: 20131004
  Receipt Date: 20131004
  Transmission Date: 20140711
  Serious: No
  Sender: FDA-Public Use
  Company Number: US-PURDUE-USA-2012-0092301

PATIENT
  Age: 53 Year
  Sex: Female

DRUGS (3)
  1. BUTRANS [Suspect]
     Indication: PAIN
     Dosage: 20 MCG, UNK
     Route: 062
     Dates: start: 201207
  2. BUTRANS [Suspect]
     Dosage: 10 MCG/HR, UNK
     Route: 062
  3. SENOKOT [Concomitant]
     Indication: PRODUCT USED FOR UNKNOWN INDICATION
     Dosage: UNK UNK, DAILY

REACTIONS (9)
  - Muscle spasms [Unknown]
  - Headache [Unknown]
  - Drug effect decreased [Unknown]
  - Product adhesion issue [Unknown]
  - Pain [Unknown]
  - Diarrhoea [Unknown]
  - Insomnia [Unknown]
  - Abdominal pain upper [Unknown]
  - Drug withdrawal syndrome [Unknown]
